FAERS Safety Report 4278372-0 (Version None)
Quarter: 2004Q1

REPORT INFORMATION
  Report Type: 
  Country: None (occurrence: None)
  Receive Date: 20040123
  Receipt Date: 20040119
  Transmission Date: 20041129
  Serious: Yes (Death, Other)
  Sender: FDA-Public Use
  Company Number: PHNU2004DE00620

PATIENT
  Age: 1 Week
  Sex: Male
  Weight: 4600 kg

DRUGS (1)
  1. SYNTOCINON [Suspect]
     Route: 064

REACTIONS (5)
  - CEREBRAL HAEMORRHAGE [None]
  - CONVULSION [None]
  - CONVULSION NEONATAL [None]
  - MATERNAL DRUGS AFFECTING FOETUS [None]
  - RESUSCITATION [None]
